FAERS Safety Report 8375135 (Version 2)
Quarter: 2013Q2

REPORT INFORMATION
  Report Type: Spontaneous
  Country: US (occurrence: None)
  Receive Date: 20111221
  Receipt Date: 20121227
  Transmission Date: 20140414
  Serious: Yes (Hospitalization)
  Sender: FDA-Public Use
  Company Number: PHEH2011US05988

PATIENT
  Age: 15 Year
  Sex: Male
  Weight: 64.4 kg

DRUGS (2)
  1. EXJADE [Suspect]
     Indication: SICKLE CELL ANAEMIA
     Route: 048
     Dates: start: 20060508
  2. EXJADE [Suspect]
     Indication: IRON OVERLOAD
     Route: 048
     Dates: start: 20060508

REACTIONS (3)
  - SICKLE CELL ANAEMIA WITH CRISIS [None]
  - PYREXIA [None]
  - PAIN [None]
